FAERS Safety Report 9437515 (Version 2)
Quarter: 2013Q3

REPORT INFORMATION
  Report Type: Spontaneous
  Country: DE (occurrence: DE)
  Receive Date: 20130802
  Receipt Date: 20130906
  Transmission Date: 20140515
  Serious: Yes (Other)
  Sender: FDA-Public Use
  Company Number: DE-PFIZER INC-2013219297

PATIENT
  Age: 4 Year
  Sex: Male
  Weight: 17 kg

DRUGS (2)
  1. BENEFIX [Suspect]
     Indication: FACTOR IX DEFICIENCY
     Dosage: 1000 IU, 2X/WEEK
     Route: 042
     Dates: start: 200912
  2. BENEFIX [Suspect]
     Indication: PROPHYLAXIS

REACTIONS (2)
  - Haemarthrosis [Not Recovered/Not Resolved]
  - Factor IX inhibition [Not Recovered/Not Resolved]
